FAERS Safety Report 14033911 (Version 1)
Quarter: 2017Q4

REPORT INFORMATION
  Report Type: Spontaneous
  Country: JP (occurrence: JP)
  Receive Date: 20171003
  Receipt Date: 20171003
  Transmission Date: 20180321
  Serious: Yes (Other)
  Sender: FDA-Public Use
  Company Number: JP-009507513-1708JPN005540

PATIENT
  Age: 42 Year
  Sex: Female

DRUGS (2)
  1. PREDNISOLONE. [Suspect]
     Active Substance: PREDNISOLONE
     Indication: MIXED CONNECTIVE TISSUE DISEASE
  2. BONALON [Suspect]
     Active Substance: ALENDRONATE SODIUM
     Indication: MIXED CONNECTIVE TISSUE DISEASE
     Route: 048

REACTIONS (2)
  - Bone disorder [Unknown]
  - Atypical femur fracture [Unknown]
